FAERS Safety Report 5789496-0 (Version None)
Quarter: 2008Q2

REPORT INFORMATION
  Report Type: 
  Country: None (occurrence: None)
  Receive Date: 20080626
  Receipt Date: 20080124
  Transmission Date: 20081010
  Serious: No
  Sender: FDA-Public Use
  Company Number: US-ASTRAZENECA-2008UW01866

PATIENT
  Age: 1 Year
  Sex: Male
  Weight: 17.2 kg

DRUGS (1)
  1. PULMICORT RESPULES [Suspect]
     Dosage: 0.25 MG/DL
     Route: 055

REACTIONS (2)
  - APPLICATION SITE BURN [None]
  - MEDICATION ERROR [None]
